FAERS Safety Report 10025222 (Version 1)
Quarter: 2014Q1

REPORT INFORMATION
  Report Type: Spontaneous
  Country: US (occurrence: None)
  Receive Date: 20140318
  Receipt Date: 20140318
  Transmission Date: 20141002
  Serious: Yes (Hospitalization)
  Sender: FDA-Public Use
  Company Number: DEP_001926_2014

PATIENT
  Age: 78 Year
  Sex: Female

DRUGS (10)
  1. GABAPENTIN [Suspect]
     Indication: NEURALGIA
  2. GABAPENTIN [Suspect]
     Indication: OFF LABEL USE
  3. SIMVASTATIN [Concomitant]
  4. METFORMIN [Concomitant]
  5. CITALOPRAM [Concomitant]
  6. FLUTICASONE PROPIONATE [Concomitant]
  7. ALBUTEROL/00139501/ [Concomitant]
  8. LISINOPRIL [Concomitant]
  9. FUROSEMIDE [Concomitant]
  10. METOLAZONE [Concomitant]

REACTIONS (8)
  - Toxicity to various agents [None]
  - Azotaemia [None]
  - Renal failure acute [None]
  - Hyperkalaemia [None]
  - Blood creatinine increased [None]
  - Blood urea increased [None]
  - Haemodialysis [None]
  - Myoclonus [None]
